FAERS Safety Report 23700080 (Version 1)
Quarter: 2024Q2

REPORT INFORMATION
  Report Type: Spontaneous
  Country: US (occurrence: US)
  Receive Date: 20240403
  Receipt Date: 20240403
  Transmission Date: 20240716
  Serious: No
  Sender: FDA-Public Use
  Company Number: US-APOTEX-2024AP003691

PATIENT
  Sex: Female

DRUGS (3)
  1. ZONISAMIDE [Suspect]
     Active Substance: ZONISAMIDE
     Indication: Partial seizures
     Dosage: UNK
     Route: 065
  2. ZONISAMIDE [Suspect]
     Active Substance: ZONISAMIDE
     Dosage: 100 MILLIGRAM, QD
     Route: 065
     Dates: start: 201201, end: 2012
  3. ZONISAMIDE [Suspect]
     Active Substance: ZONISAMIDE
     Dosage: 400 MILLIGRAM, QD (INCREASED TO 400 MG OVER A 1-YEAR PERIOD)
     Route: 065
     Dates: start: 2012, end: 2012

REACTIONS (2)
  - Hereditary optic atrophy [Unknown]
  - Unmasking of previously unidentified disease [Unknown]

NARRATIVE: CASE EVENT DATE: 20130101
